FAERS Safety Report 25498687 (Version 2)
Quarter: 2025Q3

REPORT INFORMATION
  Report Type: Spontaneous
  Country: EU (occurrence: EU)
  Receive Date: 20250701
  Receipt Date: 20250716
  Transmission Date: 20251021
  Serious: Yes (Hospitalization, Other)
  Sender: RANBAXY
  Company Number: EU-SUN PHARMACEUTICAL INDUSTRIES LTD-2025R1-514113

PATIENT
  Age: 74 Year
  Sex: Female

DRUGS (2)
  1. CIPROFLOXACIN [Suspect]
     Active Substance: CIPROFLOXACIN
     Indication: Procedural pain
     Route: 008
  2. EPINEPHRINE [Concomitant]
     Active Substance: EPINEPHRINE
     Indication: Procedural pain
     Route: 008

REACTIONS (5)
  - Accidental exposure to product [Unknown]
  - Abdominal pain [Unknown]
  - Burning sensation [Unknown]
  - Product administration error [Unknown]
  - Overdose [Unknown]
